FAERS Safety Report 18321745 (Version 1)
Quarter: 2020Q3

REPORT INFORMATION
  Report Type: Spontaneous
  Country: US (occurrence: JP)
  Receive Date: 20200929
  Receipt Date: 20200929
  Transmission Date: 20201103
  Serious: Yes (Other)
  Sender: FDA-Public Use
  Company Number: JP-ALLERGAN-2036719US

PATIENT
  Sex: Male

DRUGS (1)
  1. GATIFLO [Suspect]
     Active Substance: GATIFLOXACIN
     Indication: PRODUCT USED FOR UNKNOWN INDICATION
     Dosage: UNK
     Route: 047
     Dates: start: 201901, end: 201901

REACTIONS (2)
  - Anaphylactic shock [Unknown]
  - Hypoxic-ischaemic encephalopathy [Unknown]

NARRATIVE: CASE EVENT DATE: 201901
